FAERS Safety Report 13680145 (Version 4)
Quarter: 2018Q2

REPORT INFORMATION
  Report Type: Report from Study
  Country: US (occurrence: US)
  Receive Date: 20170622
  Receipt Date: 20180411
  Transmission Date: 20180711
  Serious: Yes (Hospitalization, Other)
  Sender: FDA-Public Use
  Company Number: US-ACTELION-A-NJ2017-155694

PATIENT
  Age: 73 Year
  Sex: Female
  Weight: 63.95 kg

DRUGS (2)
  1. OPSUMIT [Suspect]
     Active Substance: MACITENTAN
     Indication: PULMONARY ARTERIAL HYPERTENSION
     Dosage: 10 MG, QD
     Route: 048
  2. SILDENAFIL CITRATE. [Concomitant]
     Active Substance: SILDENAFIL CITRATE

REACTIONS (11)
  - Liver disorder [Unknown]
  - Haematochezia [Not Recovered/Not Resolved]
  - Transfusion [Unknown]
  - Haemorrhoidal haemorrhage [Unknown]
  - Ammonia increased [Unknown]
  - Anaemia [Unknown]
  - Gastrointestinal haemorrhage [Unknown]
  - Blood iron decreased [Unknown]
  - Pancreatic disorder [Unknown]
  - Gastrointestinal ulcer haemorrhage [Unknown]
  - Platelet count decreased [Unknown]
